FAERS Safety Report 13136984 (Version 1)
Quarter: 2017Q1

REPORT INFORMATION
  Report Type: Spontaneous
  Country: DE (occurrence: DE)
  Receive Date: 20170123
  Receipt Date: 20170123
  Transmission Date: 20170428
  Serious: Yes (Hospitalization)
  Sender: FDA-Public Use
  Company Number: DE-UCBSA-2017002295

PATIENT
  Age: 26 Year
  Sex: Male

DRUGS (11)
  1. CHOLECALCIFEROL [Concomitant]
     Active Substance: CHOLECALCIFEROL
     Dosage: 1000-0-0 MG, ONCE DAILY (QD)
  2. VALPROIC ACID. [Concomitant]
     Active Substance: VALPROIC ACID
     Indication: PRODUCT USED FOR UNKNOWN INDICATION
     Dosage: 600 MG, 2X/DAY (BID)  (STRENGTH :59.1 MG/L )
     Dates: start: 201607, end: 201607
  3. VALPROIC ACID. [Concomitant]
     Active Substance: VALPROIC ACID
     Dosage: 750 MG, 2X/DAY (BID) (INCREASED FROM 1200 MG/D TO 1500 MG/D)
     Dates: start: 201607
  4. TOPIRAMAT [Concomitant]
     Active Substance: TOPIRAMATE
     Dosage: 75 MG, 2X/DAY (BID) (REDUCED FROM 200 MG TO 150 MG/D. )
     Dates: start: 201607
  5. FOLIC ACID. [Concomitant]
     Active Substance: FOLIC ACID
     Dosage: 5-0-0 MG, ONCE DAILY (QD)
  6. BRIVIACT [Suspect]
     Active Substance: BRIVARACETAM
     Indication: IDIOPATHIC GENERALISED EPILEPSY
     Dosage: 200MG/ DAY
     Dates: start: 201607
  7. RIVOTRIL [Concomitant]
     Active Substance: CLONAZEPAM
     Dosage: 1-2 MG/D, AS NEEDED (PRN)
  8. BRIVIACT [Suspect]
     Active Substance: BRIVARACETAM
     Indication: OFF LABEL USE
  9. RISPERIDONE. [Concomitant]
     Active Substance: RISPERIDONE
     Dosage: UNK, 2X/DAY (BID)
  10. TOPIRAMAT [Concomitant]
     Active Substance: TOPIRAMATE
     Dosage: 100 MG, 2X/DAY (BID), (STRENGTH :6.1 MG/L )
     Dates: start: 201607, end: 201607
  11. MIRTAZAPINE. [Concomitant]
     Active Substance: MIRTAZAPINE
     Dosage: 0-0-0-45 MG, ONCE DAILY (QD)

REACTIONS (6)
  - Off label use [Unknown]
  - Foot fracture [Recovered/Resolved]
  - Fatigue [Unknown]
  - Seizure [Unknown]
  - Restless legs syndrome [Unknown]
  - Myoclonus [Unknown]

NARRATIVE: CASE EVENT DATE: 201607
